FAERS Safety Report 7503821-1 (Version None)
Quarter: 2011Q2

REPORT INFORMATION
  Report Type: 
  Country: None (occurrence: None)
  Receive Date: 20110518
  Receipt Date: 20110512
  Transmission Date: 20111010
  Serious: Yes (Other)
  Sender: FDA-Public Use
  Company Number: GER/GER/11/0018295

PATIENT
  Sex: Female
  Weight: 45 kg

DRUGS (3)
  1. LAMOTRIGINE [Suspect]
     Indication: BORDERLINE PERSONALITY DISORDER
     Dosage: 150 MG, 1 IN 1 D, ORAL
     Route: 048
  2. DOPPELHERZ (TOCOPHERYL ACETATE) [Concomitant]
  3. FLUOXETINE [Suspect]
     Indication: BORDERLINE PERSONALITY DISORDER
     Dosage: 30 MG, 1 IN 1 D, ORAL
     Route: 048

REACTIONS (3)
  - DRUG EXPOSURE DURING PREGNANCY [None]
  - ABORTION MISSED [None]
  - TWIN PREGNANCY [None]
